FAERS Safety Report 8818440 (Version 1)
Quarter: 2012Q4

REPORT INFORMATION
  Report Type: 
  Country: FR (occurrence: FR)
  Receive Date: 20121001
  Receipt Date: 20121001
  Transmission Date: 20130627
  Serious: Yes (Hospitalization)
  Sender: FDA-Public Use
  Company Number: FR-ELI_LILLY_AND_COMPANY-FR201209005726

PATIENT
  Age: 81 Year
  Sex: Female

DRUGS (1)
  1. FORSTEO [Suspect]
     Indication: OSTEOPOROSIS POSTMENOPAUSAL
     Dosage: 20 ug, qd
     Route: 058
     Dates: start: 20120114

REACTIONS (3)
  - Pancreatitis [Recovered/Resolved]
  - Gastrointestinal pain [Recovered/Resolved]
  - Flatulence [Recovered/Resolved]
